FAERS Safety Report 9672303 (Version 1)
Quarter: 2013Q4

REPORT INFORMATION
  Report Type: Spontaneous
  Country: CA (occurrence: None)
  Receive Date: 20131105
  Receipt Date: 20131105
  Transmission Date: 20140711
  Serious: Yes (Other)
  Sender: FDA-Public Use
  Company Number: 2013AP009432

PATIENT
  Age: 58 Year
  Sex: Female

DRUGS (9)
  1. CITALOPRAM (CITALOPRAM) [Suspect]
  2. QUETIAPINE (QUETIAPINE) [Suspect]
  3. HYDROCHLOROTHIAZIDE (HYDROCHLOROTHIAZIDE) [Suspect]
  4. CLONAZEPAM (CLONAZEPAM) (CLONAZEPAM) [Suspect]
  5. ATENOLOL (ATENOLOL) [Suspect]
  6. RANITIDINE (RANITIDINE) [Suspect]
  7. MIRTAZAPINE (MIRTAZAPINE) [Suspect]
  8. ROSUVASTATIN (ROSUVASTATIN) [Suspect]
  9. ACAMPROSATE [Suspect]

REACTIONS (6)
  - Electrocardiogram QT prolonged [None]
  - Ventricular fibrillation [None]
  - Asthenia [None]
  - Nausea [None]
  - Hyperhidrosis [None]
  - Malaise [None]
